FAERS Safety Report 7247196-4 (Version None)
Quarter: 2011Q1

REPORT INFORMATION
  Report Type: 
  Country: None (occurrence: None)
  Receive Date: 20110127
  Receipt Date: 20110119
  Transmission Date: 20110831
  Serious: Yes (Other)
  Sender: FDA-Public Use
  Company Number: US-JNJFOC-20110105325

PATIENT
  Sex: Female
  Weight: 48.08 kg

DRUGS (5)
  1. ZANTAC [Concomitant]
     Indication: GASTRIC DISORDER
     Route: 048
  2. REMICADE [Suspect]
     Indication: RHEUMATOID ARTHRITIS
     Route: 042
  3. CELLCEPT [Concomitant]
     Indication: RHEUMATOID ARTHRITIS
     Route: 048
  4. RELAFEN [Concomitant]
     Indication: INFLAMMATION
     Route: 048
  5. FLONASE [Concomitant]
     Indication: SINUS DISORDER
     Route: 045

REACTIONS (6)
  - MALAISE [None]
  - OSTEOPOROSIS [None]
  - ALOPECIA [None]
  - LYMPHADENOPATHY [None]
  - FATIGUE [None]
  - WEIGHT DECREASED [None]
